FAERS Safety Report 20279311 (Version 1)
Quarter: 2022Q1

REPORT INFORMATION
  Report Type: Report from Study
  Country: BR (occurrence: BR)
  Receive Date: 20220103
  Receipt Date: 20220103
  Transmission Date: 20220423
  Serious: Yes (Other)
  Sender: FDA-Public Use
  Company Number: BR-Merck Healthcare KGaA-9281913

PATIENT
  Age: 55 Year
  Sex: Female

DRUGS (6)
  1. CETUXIMAB [Suspect]
     Active Substance: CETUXIMAB
     Indication: Colorectal cancer metastatic
     Dosage: UNK UNK, 2/M
     Route: 042
     Dates: start: 20210901
  2. SERTRALINE [Concomitant]
     Active Substance: SERTRALINE HYDROCHLORIDE
     Indication: Product used for unknown indication
     Dosage: UNK
  3. SIMVASTATIN [Concomitant]
     Active Substance: SIMVASTATIN
     Indication: Product used for unknown indication
     Dosage: UNK
  4. OXALIPLATIN [Concomitant]
     Active Substance: OXALIPLATIN
     Indication: Colorectal cancer metastatic
  5. FLUOROURACIL [Concomitant]
     Active Substance: FLUOROURACIL
     Indication: Colorectal cancer metastatic
  6. LEUCOVORIN [Concomitant]
     Active Substance: LEUCOVORIN
     Indication: Colorectal cancer metastatic

REACTIONS (3)
  - Neutropenia [Unknown]
  - Immunodeficiency [Unknown]
  - Off label use [Unknown]

NARRATIVE: CASE EVENT DATE: 20210101
